FAERS Safety Report 16844998 (Version 2)
Quarter: 2019Q4

REPORT INFORMATION
  Report Type: Spontaneous
  Country: US (occurrence: US)
  Receive Date: 20190924
  Receipt Date: 20191023
  Transmission Date: 20200122
  Serious: No
  Sender: FDA-Public Use
  Company Number: US-PFIZER INC-2019409622

PATIENT
  Age: 47 Year
  Sex: Female

DRUGS (1)
  1. SUTENT [Suspect]
     Active Substance: SUNITINIB MALATE
     Indication: RENAL CANCER
     Dosage: 50 MG, CYCLIC(TAKE 1 CAPSULE BY MOUTH DAILY FOR 4 WEEKS, AND OFF 2 WEEKS)
     Route: 048
     Dates: start: 20191003

REACTIONS (9)
  - Yellow skin [Unknown]
  - Pain [Unknown]
  - Chills [Recovered/Resolved]
  - Feeling hot [Recovered/Resolved]
  - Abdominal distension [Unknown]
  - Fatigue [Unknown]
  - Constipation [Unknown]
  - Constipation [Not Recovered/Not Resolved]
  - Gastrointestinal disorder [Unknown]
